FAERS Safety Report 13064940 (Version 1)
Quarter: 2016Q4

REPORT INFORMATION
  Report Type: Spontaneous
  Country: BE (occurrence: BE)
  Receive Date: 20161227
  Receipt Date: 20161227
  Transmission Date: 20170207
  Serious: Yes (Other)
  Sender: FDA-Public Use
  Company Number: BE-PFIZER INC-2016589159

PATIENT
  Age: 54 Year
  Sex: Female

DRUGS (2)
  1. DUAVIVE [Suspect]
     Active Substance: BAZEDOXIFENE ACETATE\ESTROGENS, CONJUGATED
  2. UTROGESTAN [Concomitant]
     Active Substance: PROGESTERONE

REACTIONS (3)
  - Breast discomfort [Unknown]
  - Vaginal haemorrhage [Unknown]
  - Vertigo [Unknown]
